FAERS Safety Report 6053764-8 (Version None)
Quarter: 2009Q1

REPORT INFORMATION
  Report Type: 
  Country: None (occurrence: None)
  Receive Date: 20090127
  Receipt Date: 20081110
  Transmission Date: 20090719
  Serious: No
  Sender: FDA-Public Use
  Company Number: US-TEVA-178243USA

PATIENT
  Sex: Male
  Weight: 120.31 kg

DRUGS (1)
  1. COPAXONE [Suspect]
     Indication: MULTIPLE SCLEROSIS
     Route: 058
     Dates: start: 20070501, end: 20080907

REACTIONS (5)
  - CHEST PAIN [None]
  - CHILLS [None]
  - DYSPNOEA [None]
  - IMMEDIATE POST-INJECTION REACTION [None]
  - PYREXIA [None]
